FAERS Safety Report 15835819 (Version 1)
Quarter: 2019Q1

REPORT INFORMATION
  Report Type: Spontaneous
  Country: US (occurrence: US)
  Receive Date: 20190117
  Receipt Date: 20190117
  Transmission Date: 20190417
  Serious: No
  Sender: FDA-Public Use
  Company Number: US-B.I. PHARMACEUTICALS,INC./RIDGEFIELD-2019-BI-001946

PATIENT
  Age: 78 Year
  Sex: Male

DRUGS (1)
  1. ATROVENT [Suspect]
     Active Substance: IPRATROPIUM BROMIDE
     Indication: ASTHMA
     Dosage: 2 INHALATIONS QID;  FORM STRENGTH: 17 MCG; FORMULATION: INHALATION AEROSOL
     Route: 048
     Dates: start: 20190111, end: 20190115

REACTIONS (3)
  - Cough [Unknown]
  - Off label use [Unknown]
  - Asthma [Not Recovered/Not Resolved]

NARRATIVE: CASE EVENT DATE: 20190111
